FAERS Safety Report 4306076-4 (Version None)
Quarter: 2004Q1

REPORT INFORMATION
  Report Type: 
  Country: None (occurrence: None)
  Receive Date: 20040225
  Receipt Date: 20030103
  Transmission Date: 20041129
  Serious: No
  Sender: FDA-Public Use
  Company Number: US-BRISTOL-MYERS SQUIBB COMPANY-12182853

PATIENT
  Sex: Male

DRUGS (3)
  1. EXCEDRIN (MIGRAINE) [Suspect]
     Indication: TOOTHACHE
     Route: 048
     Dates: start: 20030103
  2. ARTHRITIS MEDICATION [Suspect]
     Indication: TOOTHACHE
     Route: 048
     Dates: start: 20030103
  3. ASPIRIN [Suspect]
     Indication: TOOTHACHE
     Route: 048
     Dates: start: 20030103

REACTIONS (2)
  - DIZZINESS [None]
  - FEELING ABNORMAL [None]
